FAERS Safety Report 9846170 (Version 1)
Quarter: 2013Q4

REPORT INFORMATION
  Report Type: Spontaneous
  Country: US (occurrence: None)
  Receive Date: 20131223
  Receipt Date: 20131223
  Transmission Date: 20140711
  Serious: Yes (Death, Hospitalization)
  Sender: FDA-Public Use
  Company Number: DSA_60893_2012

PATIENT
  Age: 73 Year
  Sex: Male

DRUGS (9)
  1. XENAZINE (12.5 MILLIGRAM, TABLET) (TETRABENAZINE, TETRABENAZINE) [Suspect]
     Indication: SYDENHAM^S CHOREA
     Dosage: 25 MG, 2 IN 1 D, ORAL
     Route: 048
     Dates: end: 20121203
  2. METOPROLOL ER (25 MILLIGRAM) [Concomitant]
  3. DUONEB [Concomitant]
  4. CLONAZEPAM (1 MILLIGRAM) [Concomitant]
  5. SOTALOL [Concomitant]
  6. DOXAZOSIN [Concomitant]
  7. ADVAIR [Concomitant]
  8. CETIRIZINE [Concomitant]
  9. POTASSIUM (20 MILLIEQUIVALENTS) [Concomitant]

REACTIONS (1)
  - Pneumonia aspiration [None]
